FAERS Safety Report 9316954 (Version 1)
Quarter: 2013Q2

REPORT INFORMATION
  Report Type: Spontaneous
  Country: GB (occurrence: None)
  Receive Date: 20130523
  Receipt Date: 20130523
  Transmission Date: 20140414
  Serious: Yes (Disabling, Congenital Anomaly, Other)
  Sender: FDA-Public Use
  Company Number: AUR-APL-2013-04089

PATIENT
  Sex: Male
  Weight: 6 kg

DRUGS (3)
  1. GABAPENTIN (GABAPENTIN) [Suspect]
     Indication: FIBROMYALGIA
     Dosage: 300 MG (100 MG, 3 IN 1 D)
     Route: 064
     Dates: start: 20120120, end: 201203
  2. FERROUS FUMARATE (FERROUS FUMARATE) [Concomitant]
  3. PREGNACARE ORIGINAL (PREGNACARE/07673701/) [Concomitant]

REACTIONS (3)
  - Maternal drugs affecting foetus [None]
  - Talipes [None]
  - Nail disorder [None]
